FAERS Safety Report 10690727 (Version 1)
Quarter: 2015Q1

REPORT INFORMATION
  Report Type: Spontaneous
  Country: GB (occurrence: GB)
  Receive Date: 20150105
  Receipt Date: 20150105
  Transmission Date: 20150720
  Serious: Yes (Hospitalization)
  Sender: FDA-Public Use
  Company Number: GB-TEVA-531776ISR

PATIENT
  Age: 83 Year
  Sex: Female

DRUGS (1)
  1. AMIODARONE [Suspect]
     Active Substance: AMIODARONE
     Dosage: IN THE MORNING.
     Route: 048

REACTIONS (3)
  - Hypothyroidism [Recovering/Resolving]
  - Depressed mood [Unknown]
  - Presyncope [Unknown]
